FAERS Safety Report 9386223 (Version 2)
Quarter: 2013Q3

REPORT INFORMATION
  Report Type: Spontaneous
  Country: RS (occurrence: RS)
  Receive Date: 20130708
  Receipt Date: 20130715
  Transmission Date: 20140515
  Serious: Yes (Death)
  Sender: FDA-Public Use
  Company Number: RS-ROCHE-1245370

PATIENT
  Age: 67 Year
  Sex: Female
  Weight: 76 kg

DRUGS (6)
  1. MABTHERA [Suspect]
     Indication: RHEUMATOID ARTHRITIS
     Route: 042
     Dates: start: 201012, end: 201208
  2. METHOTREXATE [Suspect]
     Indication: RHEUMATOID ARTHRITIS
     Route: 048
     Dates: start: 2012, end: 20121025
  3. FOLAN [Suspect]
     Route: 048
     Dates: start: 2002, end: 20121025
  4. MOVALIS [Concomitant]
     Indication: RHEUMATOID ARTHRITIS
     Route: 048
     Dates: start: 201208, end: 20121025
  5. TRITACE [Concomitant]
     Indication: HYPERTENSION
     Route: 048
     Dates: end: 20121025
  6. TRITACE COMP [Concomitant]
     Indication: HYPERTENSION
     Route: 048
     Dates: end: 20121025

REACTIONS (1)
  - Cardiac arrest [Fatal]
